FAERS Safety Report 9511383 (Version 1)
Quarter: 2013Q3

REPORT INFORMATION
  Report Type: Spontaneous
  Country: US (occurrence: None)
  Receive Date: 20130906
  Receipt Date: 20130906
  Transmission Date: 20140515
  Serious: Yes (Hospitalization, Other)
  Sender: FDA-Public Use
  Company Number: 2013HINLIT0149

PATIENT
  Age: 59 Year
  Sex: Male

DRUGS (4)
  1. LITHIUM (LITHIUM) UNKNOWN [Suspect]
     Indication: BIPOLAR DISORDER
     Dosage: 450 MG FOR THE TREATMENT OF BIPOLAR DISORDER (ACTION TAKEN: WITHDRAWN), BID, UNKNOWN
  2. FLUPHENAZINE DECANOATE (FLUPHENAZINE DECANOATE) [Suspect]
     Dosage: 37.5 MG EVERY 3 WEEKS FOR THE TREATMENT OF BIPOLAR DISORDER(ACTION TAKEN: WITHDRAWN)
  3. VALSARTAN (VALSARTAN) [Concomitant]
  4. LISINOPRIL (LISNOPRIL) [Concomitant]

REACTIONS (3)
  - Toxicity to various agents [None]
  - Neuroleptic malignant syndrome [None]
  - Drug interaction [None]
